FAERS Safety Report 10739831 (Version 2)
Quarter: 2015Q2

REPORT INFORMATION
  Report Type: Spontaneous
  Country: IT (occurrence: IT)
  Receive Date: 20150127
  Receipt Date: 20150429
  Transmission Date: 20150821
  Serious: Yes (Hospitalization)
  Sender: FDA-Public Use
  Company Number: IT-ROCHE-1525633

PATIENT
  Age: 86 Year
  Sex: Female

DRUGS (8)
  1. LEVOXACIN [Interacting]
     Active Substance: LEVOFLOXACIN
     Indication: PRODUCT USED FOR UNKNOWN INDICATION
     Dosage: 500MG
     Route: 041
     Dates: start: 20150115, end: 20150120
  2. LANOXIN [Concomitant]
     Active Substance: DIGOXIN
     Route: 048
  3. ROCEFIN [Suspect]
     Active Substance: CEFTRIAXONE SODIUM
     Indication: PRODUCT USED FOR UNKNOWN INDICATION
     Dosage: 1G/10ML POWDER + SOLVENT FOR SOLUTION
     Route: 041
     Dates: start: 20150115, end: 20150120
  4. NEXIUM [Concomitant]
     Active Substance: ESOMEPRAZOLE MAGNESIUM
     Dosage: GASTRO-RESISTANT TABLET
     Route: 048
  5. COUMADIN [Interacting]
     Active Substance: WARFARIN SODIUM
     Indication: ATRIAL FIBRILLATION
     Dosage: 5MG TABLET 30 SCORED TABLET
     Route: 048
     Dates: start: 20120101, end: 20150121
  6. GLIBOMET [Concomitant]
     Active Substance: GLYBURIDE\METFORMIN HYDROCHLORIDE
     Dosage: 400MG + 2.5MG FILM COATED TABLET
     Route: 048
  7. CATAPRESAN [Concomitant]
     Active Substance: CLONIDINE
     Route: 048
  8. AMLODIPINE [Concomitant]
     Active Substance: AMLODIPINE BESYLATE

REACTIONS (2)
  - Drug interaction [Unknown]
  - Hypocoagulable state [Recovering/Resolving]

NARRATIVE: CASE EVENT DATE: 20150120
